FAERS Safety Report 18800934 (Version 1)
Quarter: 2021Q1

REPORT INFORMATION
  Report Type: Spontaneous
  Country: GB (occurrence: GB)
  Receive Date: 20210128
  Receipt Date: 20210128
  Transmission Date: 20210419
  Serious: Yes (Other)
  Sender: FDA-Public Use
  Company Number: GB-TEVA-2021-GB-1871470

PATIENT
  Age: 52 Year
  Sex: Male
  Weight: 79.82 kg

DRUGS (4)
  1. ATORVASTATIN CALCIUM. [Concomitant]
     Active Substance: ATORVASTATIN CALCIUM
  2. OMEPRAZOLE. [Concomitant]
     Active Substance: OMEPRAZOLE
  3. FLUOXETIN [Suspect]
     Active Substance: FLUOXETINE HYDROCHLORIDE
     Dosage: 20 MILLIGRAM DAILY;
     Route: 048
     Dates: start: 2017, end: 202003
  4. ATORVASTATIN [Concomitant]
     Active Substance: ATORVASTATIN

REACTIONS (1)
  - Haematospermia [Recovered/Resolved]

NARRATIVE: CASE EVENT DATE: 2017
